FAERS Safety Report 5494978-5 (Version None)
Quarter: 2007Q4

REPORT INFORMATION
  Report Type: 
  Country: None (occurrence: None)
  Receive Date: 20071024
  Receipt Date: 20070925
  Transmission Date: 20080405
  Serious: Yes (Death, Hospitalization)
  Sender: FDA-Public Use
  Company Number: US-AVENTIS-200717304US

PATIENT
  Sex: Male

DRUGS (1)
  1. RILUTEK [Suspect]
     Dosage: DOSE: UNK
     Dates: start: 20060101, end: 20060101

REACTIONS (3)
  - CONDITION AGGRAVATED [None]
  - DEATH [None]
  - TRACHEOSTOMY [None]
